FAERS Safety Report 9839938 (Version 2)
Quarter: 2014Q1

REPORT INFORMATION
  Report Type: Spontaneous
  Country: US (occurrence: US)
  Receive Date: 20140124
  Receipt Date: 20140201
  Transmission Date: 20141002
  Serious: Yes (Other)
  Sender: FDA-Public Use
  Company Number: US-SUN PHARMACEUTICAL INDUSTRIES LTD-2014SUN00080

PATIENT
  Sex: 0

DRUGS (2)
  1. DOXYCYCLINE HYCLATE TABLETS, USP 100 MG [Suspect]
     Indication: EAR PAIN
     Dosage: 1 DF, BID
     Route: 048
     Dates: start: 20140112
  2. ARMOUR THYROID [Concomitant]
     Dosage: SINCE 10 YEARS

REACTIONS (2)
  - Blood pressure increased [Recovered/Resolved]
  - Heart rate decreased [Recovered/Resolved]
